FAERS Safety Report 7262353-9 (Version None)
Quarter: 2011Q1

REPORT INFORMATION
  Report Type: 
  Country: None (occurrence: None)
  Receive Date: 20110130
  Receipt Date: 20101116
  Transmission Date: 20110831
  Serious: No
  Sender: FDA-Public Use
  Company Number: US-ABBOTT-10P-163-0685930-00

PATIENT
  Age: 45 Year
  Sex: Male

DRUGS (7)
  1. TRAMADOL HCL [Concomitant]
     Indication: PAIN
  2. PREDNISONE [Concomitant]
     Indication: BACK PAIN
     Dates: start: 20101115
  3. GEMFIBROZIL [Concomitant]
     Indication: BLOOD TRIGLYCERIDES INCREASED
  4. HUMIRA [Suspect]
     Indication: PSORIATIC ARTHROPATHY
     Dates: start: 20100916
  5. LISINOPRIL [Concomitant]
     Indication: HYPERTENSION
     Dosage: DAILY
  6. SULFASALAZINE [Concomitant]
     Indication: ARTHRITIS
  7. NAPROSYN [Concomitant]
     Indication: ARTHRALGIA

REACTIONS (4)
  - ASTHENIA [None]
  - ARTHRALGIA [None]
  - RASH [None]
  - FATIGUE [None]
